FAERS Safety Report 13942395 (Version 1)
Quarter: 2017Q3

REPORT INFORMATION
  Report Type: Spontaneous
  Country: US (occurrence: US)
  Receive Date: 20170907
  Receipt Date: 20170907
  Transmission Date: 20171127
  Serious: Yes (Other)
  Sender: FDA-Public Use
  Company Number: None

PATIENT
  Age: 65 Year
  Sex: Female
  Weight: 105.75 kg

DRUGS (8)
  1. XIIDRA [Suspect]
     Active Substance: LIFITEGRAST
     Indication: DRY EYE
     Route: 047
     Dates: start: 20170626, end: 20170630
  2. GABAPENTIN. [Concomitant]
     Active Substance: GABAPENTIN
  3. KIRKLAND VITAMINS [Concomitant]
  4. PUMP FOR HUMALOG [Concomitant]
  5. XIIDRA [Suspect]
     Active Substance: LIFITEGRAST
     Indication: EYE PRURITUS
     Route: 047
     Dates: start: 20170626, end: 20170630
  6. INSULIN [Concomitant]
     Active Substance: INSULIN NOS
  7. METFORMIN [Concomitant]
     Active Substance: METFORMIN HYDROCHLORIDE
  8. FISH OIL [Concomitant]
     Active Substance: FISH OIL

REACTIONS (5)
  - Eye swelling [None]
  - Eye infection [None]
  - Eye pain [None]
  - Product substitution issue [None]
  - Ocular hyperaemia [None]

NARRATIVE: CASE EVENT DATE: 20170629
